FAERS Safety Report 19355898 (Version 1)
Quarter: 2021Q2

REPORT INFORMATION
  Report Type: Spontaneous
  Country: FR (occurrence: FR)
  Receive Date: 20210602
  Receipt Date: 20210602
  Transmission Date: 20210717
  Serious: Yes (Hospitalization)
  Sender: FDA-Public Use
  Company Number: FR-JNJFOC-20210551585

PATIENT
  Age: 59 Year
  Sex: Male
  Weight: 85 kg

DRUGS (2)
  1. REMICADE [Suspect]
     Active Substance: INFLIXIMAB
     Indication: COLITIS
     Route: 042
     Dates: start: 2008, end: 20210409
  2. IMUREL [AZATHIOPRINE] [Suspect]
     Active Substance: AZATHIOPRINE
     Indication: COLITIS
     Route: 048
     Dates: start: 2008

REACTIONS (1)
  - Breast cancer male [Not Recovered/Not Resolved]

NARRATIVE: CASE EVENT DATE: 20210201
